FAERS Safety Report 7827657-7 (Version None)
Quarter: 2011Q4

REPORT INFORMATION
  Report Type: 
  Country: None (occurrence: None)
  Receive Date: 20111020
  Receipt Date: 20111012
  Transmission Date: 20120403
  Serious: Yes (Other)
  Sender: FDA-Public Use
  Company Number: DK-SANOFI-AVENTIS-2011SA044389

PATIENT
  Age: 68 Year
  Sex: Female
  Weight: 74 kg

DRUGS (11)
  1. DIGOXIN [Concomitant]
     Dates: end: 20101027
  2. ALDOSTERONE [Concomitant]
     Dates: start: 20101228, end: 20110110
  3. DRONEDARONE HCL [Suspect]
     Indication: ATRIAL FIBRILLATION
     Route: 048
     Dates: start: 20100927
  4. DIGOXIN [Concomitant]
  5. ASPIRIN [Concomitant]
  6. WARFARIN SODIUM [Concomitant]
  7. SIMVASTATIN [Concomitant]
  8. ALDOSTERONE [Concomitant]
     Dates: start: 20110118
  9. GLIMEPIRIDE [Concomitant]
  10. VERAPAMIL [Concomitant]
  11. FUROSEMIDE [Concomitant]

REACTIONS (1)
  - CARDIAC FAILURE [None]
